FAERS Safety Report 19911310 (Version 3)
Quarter: 2022Q1

REPORT INFORMATION
  Report Type: Other
  Country: IT (occurrence: None)
  Receive Date: 20211004
  Receipt Date: 20220227
  Transmission Date: 20220423
  Serious: No
  Sender: FDA-Public Use
  Company Number: IT-ROCHE-2927098

PATIENT
  Age: 33 Year
  Sex: Male
  Weight: 65 kg

DRUGS (2)
  1. OCRELIZUMAB [Suspect]
     Active Substance: OCRELIZUMAB
     Indication: Primary progressive multiple sclerosis
     Route: 042
     Dates: start: 20200909
  2. COVID-19 VACCINE [Concomitant]
     Indication: COVID-19
     Route: 030
     Dates: start: 20210701, end: 20210701

REACTIONS (1)
  - COVID-19 [Recovered/Resolved]

NARRATIVE: CASE EVENT DATE: 20210718
